FAERS Safety Report 20424673 (Version 1)
Quarter: 2022Q1

REPORT INFORMATION
  Report Type: Report from Study
  Country: US (occurrence: US)
  Receive Date: 20220203
  Receipt Date: 20220203
  Transmission Date: 20220423
  Serious: No
  Sender: FDA-Public Use
  Company Number: US-EXELIXIS-CABO-21038958

PATIENT
  Age: 71 Year
  Sex: Male

DRUGS (1)
  1. CABOMETYX [Suspect]
     Active Substance: CABOZANTINIB S-MALATE
     Indication: Hepatic cancer
     Dosage: 20 MG, QD
     Route: 048
     Dates: start: 20210311

REACTIONS (13)
  - Flatulence [Not Recovered/Not Resolved]
  - Pruritus [Unknown]
  - Stress [Unknown]
  - Arthralgia [Unknown]
  - Constipation [Unknown]
  - Abdominal pain upper [Not Recovered/Not Resolved]
  - Pain [Unknown]
  - Confusional state [Unknown]
  - Fatigue [Unknown]
  - Initial insomnia [Unknown]
  - Lethargy [Unknown]
  - Somnolence [Unknown]
  - Diarrhoea [Recovering/Resolving]

NARRATIVE: CASE EVENT DATE: 20210301
